FAERS Safety Report 5623375-4 (Version None)
Quarter: 2008Q1

REPORT INFORMATION
  Report Type: 
  Country: None (occurrence: None)
  Receive Date: 20080212
  Receipt Date: 20080206
  Transmission Date: 20080703
  Serious: Yes (Hospitalization)
  Sender: FDA-Public Use
  Company Number: US-WYE-H02320408

PATIENT
  Sex: Male
  Weight: 98.97 kg

DRUGS (7)
  1. TEMSIROLIMUS [Suspect]
     Indication: MANTLE CELL LYMPHOMA
     Route: 042
     Dates: start: 20070803, end: 20071210
  2. TEMSIROLIMUS [Suspect]
     Route: 042
     Dates: start: 20071210, end: 20071212
  3. ASPIRIN [Concomitant]
     Indication: CEREBROVASCULAR ACCIDENT
     Route: 048
     Dates: start: 20070101
  4. ZOLPIDEM [Concomitant]
     Indication: INSOMNIA
     Route: 048
     Dates: start: 20070501
  5. HYDROCHLOROTHIAZIDE [Concomitant]
     Indication: HYPERTENSION
     Route: 048
     Dates: start: 20071027
  6. LORAZEPAM [Concomitant]
     Indication: ANXIETY
     Dosage: 1 MG EVERY 2 PRN
     Route: 048
     Dates: start: 20000101
  7. ALFUZOSIN HYDROCHLORIDE [Concomitant]
     Indication: BENIGN PROSTATIC HYPERPLASIA
     Route: 048

REACTIONS (1)
  - PLEURAL EFFUSION [None]
